FAERS Safety Report 6998493-9 (Version None)
Quarter: 2010Q3

REPORT INFORMATION
  Report Type: 
  Country: None (occurrence: None)
  Receive Date: 20100920
  Receipt Date: 20090820
  Transmission Date: 20110219
  Serious: No
  Sender: FDA-Public Use
  Company Number: US-ASTRAZENECA-2008UW27535

PATIENT
  Age: 14606 Day
  Sex: Male
  Weight: 86.2 kg

DRUGS (3)
  1. SEROQUEL [Suspect]
     Indication: DEPRESSION
     Dosage: 100- 300 MG
     Route: 048
     Dates: start: 19980101, end: 20070101
  2. HALDOL [Concomitant]
  3. ZYPREXA [Concomitant]

REACTIONS (4)
  - ADVERSE REACTION [None]
  - BLOOD CHOLESTEROL INCREASED [None]
  - DIABETES MELLITUS [None]
  - HYPERLIPIDAEMIA [None]
